FAERS Safety Report 17029783 (Version 1)
Quarter: 2019Q4

REPORT INFORMATION
  Report Type: Report from Study
  Country: US (occurrence: US)
  Receive Date: 20191114
  Receipt Date: 20191114
  Transmission Date: 20200122
  Serious: No
  Sender: FDA-Public Use
  Company Number: NVSC2019US035415

PATIENT
  Age: 65 Year
  Sex: Female

DRUGS (1)
  1. ENTRESTO [Suspect]
     Active Substance: SACUBITRIL\VALSARTAN
     Indication: COUGH
     Dosage: 50 MG (24 MG SCUBITRIL/ 26 MG VALSARTAN), BID
     Route: 048
     Dates: start: 20160612, end: 20160712

REACTIONS (2)
  - Product use in unapproved indication [Unknown]
  - Cough [Recovered/Resolved]

NARRATIVE: CASE EVENT DATE: 20160617
